FAERS Safety Report 4413304-3 (Version None)
Quarter: 2004Q3

REPORT INFORMATION
  Report Type: 
  Country: None (occurrence: None)
  Receive Date: 20040802
  Receipt Date: 20040726
  Transmission Date: 20050211
  Serious: Yes (Other)
  Sender: FDA-Public Use
  Company Number: PHBS2004DE10003

PATIENT
  Age: 26 Year
  Sex: Female

DRUGS (6)
  1. BASILIXIMAB [Suspect]
     Indication: RENAL TRANSPLANT
     Route: 065
  2. PREDNISOLONE [Suspect]
     Indication: RENAL TRANSPLANT
  3. TACROLIMUS [Suspect]
     Indication: RENAL TRANSPLANT
  4. MYCOPHENOLATE MOFETIL [Suspect]
     Indication: RENAL TRANSPLANT
     Dosage: 500 MG, BID
  5. MYCOPHENOLATE MOFETIL [Suspect]
     Dosage: 1000 MG, BID
  6. MYCOPHENOLATE MOFETIL [Suspect]
     Dosage: 250 MG, BID

REACTIONS (11)
  - ANURIA [None]
  - DRUG TOXICITY [None]
  - GRAFT DYSFUNCTION [None]
  - HAEMODIALYSIS [None]
  - KIDNEY INFECTION [None]
  - KIDNEY TRANSPLANT REJECTION [None]
  - NEPHRITIS INTERSTITIAL [None]
  - NEPHROPATHY TOXIC [None]
  - RENAL TUBULAR NECROSIS [None]
  - URINARY TRACT INFECTION ENTEROCOCCAL [None]
  - URINE OUTPUT DECREASED [None]
